FAERS Safety Report 10776674 (Version 1)
Quarter: 2015Q1

REPORT INFORMATION
  Report Type: Spontaneous
  Country: US (occurrence: US)
  Receive Date: 20150209
  Receipt Date: 20150209
  Transmission Date: 20150721
  Serious: No
  Sender: FDA-Public Use
  Company Number: US-GLAXOSMITHKLINE-A1071141A

PATIENT

DRUGS (13)
  1. SUMATRIPTAN SOLUTION FOR INJECTION IN PRE-FILLED PEN [Suspect]
     Active Substance: SUMATRIPTAN
     Dates: start: 1999
  2. SUMATRIPTAN SOLUTION FOR INJECTION IN PRE-FILLED PEN [Suspect]
     Active Substance: SUMATRIPTAN
     Indication: MIGRAINE
     Dosage: 6 MG PRN, CURRENTLY AT 4 TIMES PER MONTH.
     Route: 065
     Dates: start: 1999
  3. PROCARDIA [Concomitant]
     Active Substance: NIFEDIPINE
  4. TRAZODONE [Concomitant]
     Active Substance: TRAZODONE HYDROCHLORIDE
  5. ZOLOFT [Concomitant]
     Active Substance: SERTRALINE HYDROCHLORIDE
  6. SUMATRIPTAN SOLUTION FOR INJECTION IN PRE-FILLED PEN [Suspect]
     Active Substance: SUMATRIPTAN
     Dates: start: 1999
  7. CELEBREX [Concomitant]
     Active Substance: CELECOXIB
  8. TOPAMAX [Concomitant]
     Active Substance: TOPIRAMATE
  9. ZYRTEC [Concomitant]
     Active Substance: CETIRIZINE HYDROCHLORIDE
  10. SUMATRIPTAN SOLUTION FOR INJECTION IN PRE-FILLED PEN [Suspect]
     Active Substance: SUMATRIPTAN
     Dates: start: 1999
  11. SUMATRIPTAN SOLUTION FOR INJECTION IN PRE-FILLED PEN [Suspect]
     Active Substance: SUMATRIPTAN
     Dates: start: 1999
  12. QVAR INHALATIONAL POWDER [Concomitant]
  13. AZELASTINE [Concomitant]
     Active Substance: AZELASTINE

REACTIONS (2)
  - Injection site bruising [Not Recovered/Not Resolved]
  - Product quality issue [Unknown]

NARRATIVE: CASE EVENT DATE: 201401
